FAERS Safety Report 9714253 (Version 3)
Quarter: 2015Q3

REPORT INFORMATION
  Report Type: Spontaneous
  Country: US (occurrence: US)
  Receive Date: 20131126
  Receipt Date: 20150803
  Transmission Date: 20151125
  Serious: No
  Sender: FDA-Public Use
  Company Number: US-GILEAD-2008-0019323

PATIENT
  Age: 69 Year
  Sex: Female
  Weight: 111.58 kg

DRUGS (9)
  1. IRON DEXTRAN [Concomitant]
     Active Substance: IRON DEXTRAN
  2. NORVASC [Concomitant]
     Active Substance: AMLODIPINE BESYLATE
  3. LETAIRIS [Suspect]
     Active Substance: AMBRISENTAN
     Indication: PULMONARY ARTERIAL HYPERTENSION
     Route: 048
     Dates: start: 20080308
  4. LASIX [Concomitant]
     Active Substance: FUROSEMIDE
  5. HYDROCHLOROTHIAZIDE/TRIAMTERENE [Concomitant]
  6. LORTAB [Concomitant]
     Active Substance: ACETAMINOPHEN\HYDROCODONE BITARTRATE
  7. POTASSIUM CHLORIDE. [Concomitant]
     Active Substance: POTASSIUM CHLORIDE
  8. LYRICA [Concomitant]
     Active Substance: PREGABALIN
  9. FLUOXETINE [Concomitant]
     Active Substance: FLUOXETINE\FLUOXETINE HYDROCHLORIDE

REACTIONS (2)
  - Oedema [Unknown]
  - Peripheral swelling [Unknown]
